FAERS Safety Report 9050265 (Version 2)
Quarter: 2013Q1

REPORT INFORMATION
  Report Type: Spontaneous
  Country: BR (occurrence: BR)
  Receive Date: 20130204
  Receipt Date: 20130307
  Transmission Date: 20140127
  Serious: Yes (Hospitalization)
  Sender: FDA-Public Use
  Company Number: BR-B.I. PHARMACEUTICALS,INC./RIDGEFIELD-2013-BR-00089BR

PATIENT
  Sex: Male
  Weight: 75 kg

DRUGS (8)
  1. SPIRIVA RESPIMAT [Suspect]
     Indication: COUGH
     Dosage: 5 MCG
     Route: 055
     Dates: start: 201212
  2. SPIRIVA RESPIMAT [Suspect]
     Indication: PULMONARY OEDEMA
  3. MEDICATION FOR STOMACH [Concomitant]
     Indication: ABDOMINAL DISCOMFORT
     Dates: start: 2009
  4. MEDICATION FOR KIDNEY [Concomitant]
     Indication: RENAL DISORDER
     Dates: start: 2009
  5. MEDICATION FOR HEART [Concomitant]
     Indication: CARDIAC DISORDER
     Dates: start: 2009
  6. MEDICATION FOR DIABETES [Concomitant]
     Indication: DIABETES MELLITUS
     Dates: start: 2009
  7. AAS [Concomitant]
     Dates: start: 2009
  8. CONCOR [Concomitant]
     Indication: HYPERTENSION

REACTIONS (2)
  - Cough [Recovered/Resolved]
  - Arterial occlusive disease [Recovered/Resolved]
